FAERS Safety Report 12874617 (Version 4)
Quarter: 2017Q1

REPORT INFORMATION
  Report Type: Spontaneous
  Country: GB (occurrence: GB)
  Receive Date: 20161021
  Receipt Date: 20170126
  Transmission Date: 20170428
  Serious: Yes (Hospitalization, Other)
  Sender: FDA-Public Use
  Company Number: GB-009507513-1610GBR011659

PATIENT
  Age: 71 Year
  Sex: Female

DRUGS (12)
  1. REVLIMID [Suspect]
     Active Substance: LENALIDOMIDE
     Indication: PLASMA CELL MYELOMA
     Dosage: 7.5 DAILY (10 MG, 1-21 IN 28 D)
     Route: 048
     Dates: start: 20160803, end: 20160813
  2. ZOMETA [Concomitant]
     Active Substance: ZOLEDRONIC ACID
     Indication: PROPHYLAXIS
  3. DEXAMETHASONE. [Suspect]
     Active Substance: DEXAMETHASONE
     Dosage: 5.7143 MG DAILY (40 MG, DAYS 1, 8, 15 AND 22 IN 28 D)
     Route: 048
  4. OXYLAN [Concomitant]
     Indication: ARTHRALGIA
     Dosage: 30 MG, BID
     Route: 065
  5. DEXAMETHASONE. [Suspect]
     Active Substance: DEXAMETHASONE
     Indication: PLASMA CELL MYELOMA
     Dosage: 5.7143 MG DAILY (40 MG, DAYS 1, 8, 15 AND 22 IN 28 D)
     Route: 048
     Dates: start: 20160803, end: 20160813
  6. REVLIMID [Suspect]
     Active Substance: LENALIDOMIDE
     Dosage: (10 MG, 1 IN 1 D)
     Route: 048
     Dates: start: 20160817
  7. OXYNORM [Concomitant]
     Active Substance: OXYCODONE HYDROCHLORIDE
     Indication: CHEST PAIN
     Dosage: 40 MILLIGRAM  (5 MG)
     Route: 065
  8. OXYNORM [Concomitant]
     Active Substance: OXYCODONE HYDROCHLORIDE
     Indication: ARTHRALGIA
  9. RAMIPRIL. [Concomitant]
     Active Substance: RAMIPRIL
     Indication: HYPERTENSION
     Dosage: UNK
     Route: 065
  10. TINZAPARIN SODIUM [Concomitant]
     Active Substance: TINZAPARIN SODIUM
     Indication: THROMBOSIS PROPHYLAXIS
  11. OXYLAN [Concomitant]
     Indication: CHEST PAIN
  12. AMLODIPINE [Concomitant]
     Active Substance: AMLODIPINE BESYLATE
     Indication: HYPERTENSION
     Dosage: UNK
     Route: 065

REACTIONS (12)
  - Decreased appetite [Unknown]
  - Neuropathy peripheral [Not Recovered/Not Resolved]
  - Atrial fibrillation [Recovered/Resolved]
  - Dry mouth [Not Recovered/Not Resolved]
  - Lethargy [Not Recovered/Not Resolved]
  - Constipation [Unknown]
  - Sepsis [Recovered/Resolved]
  - Blood creatinine increased [Recovered/Resolved]
  - Oral pain [Not Recovered/Not Resolved]
  - Dysphagia [Recovering/Resolving]
  - Oral candidiasis [Not Recovered/Not Resolved]
  - External ear cellulitis [Recovering/Resolving]

NARRATIVE: CASE EVENT DATE: 20160812
